FAERS Safety Report 6006985-4 (Version None)
Quarter: 2008Q4

REPORT INFORMATION
  Report Type: 
  Country: None (occurrence: None)
  Receive Date: 20081217
  Receipt Date: 20071210
  Transmission Date: 20090506
  Serious: No
  Sender: FDA-Public Use
  Company Number: US-ASTRAZENECA-2007UW28180

PATIENT
  Age: 53 Year
  Sex: Male
  Weight: 99.8 kg

DRUGS (1)
  1. CRESTOR [Suspect]
     Indication: BLOOD CHOLESTEROL INCREASED
     Route: 048
     Dates: start: 20070701

REACTIONS (3)
  - MEDIAL TIBIAL STRESS SYNDROME [None]
  - MYALGIA [None]
  - PAIN IN EXTREMITY [None]
